FAERS Safety Report 16215298 (Version 1)
Quarter: 2019Q2

REPORT INFORMATION
  Report Type: Spontaneous
  Country: US (occurrence: US)
  Receive Date: 20190419
  Receipt Date: 20190419
  Transmission Date: 20190711
  Serious: No
  Sender: FDA-Public Use
  Company Number: US-ACCORD-098518

PATIENT
  Sex: Male

DRUGS (1)
  1. FINASTERIDE ACCORD [Suspect]
     Active Substance: FINASTERIDE
     Indication: HAIR DISORDER
     Route: 048

REACTIONS (5)
  - Sexual dysfunction [Unknown]
  - Headache [Unknown]
  - Off label use [Unknown]
  - Dizziness [Unknown]
  - Fatigue [Unknown]
